FAERS Safety Report 4326797-7 (Version None)
Quarter: 2004Q1

REPORT INFORMATION
  Report Type: 
  Country: None (occurrence: None)
  Receive Date: 20040330
  Receipt Date: 20040324
  Transmission Date: 20041129
  Serious: Yes (Hospitalization)
  Sender: FDA-Public Use
  Company Number: PHRM2004FR01321

PATIENT
  Age: 72 Year
  Sex: Female

DRUGS (9)
  1. LAMISIL [Suspect]
     Route: 048
     Dates: start: 20021212, end: 20040113
  2. FERO-GRAD LP [Suspect]
     Route: 048
     Dates: start: 20030102, end: 20030113
  3. FORCAPIL [Suspect]
     Route: 048
     Dates: start: 20021212, end: 20030113
  4. CELESTENE [Concomitant]
     Indication: EAR INFECTION
     Route: 048
     Dates: start: 20030102, end: 20030108
  5. POLERY [Concomitant]
     Indication: EAR INFECTION
     Route: 048
     Dates: start: 20030102, end: 20030109
  6. ORELOX [Concomitant]
     Indication: EAR INFECTION
     Route: 048
     Dates: start: 20030102, end: 20030109
  7. KARDEGIC [Concomitant]
     Route: 048
     Dates: start: 20021201
  8. OROCAL D3 [Concomitant]
     Route: 048
  9. DERINOX [Concomitant]
     Indication: EAR INFECTION
     Route: 045
     Dates: start: 20030102, end: 20030106

REACTIONS (17)
  - ASTHENIA [None]
  - BLOOD UREA INCREASED [None]
  - BURNING SENSATION [None]
  - CUTANEOUS VASCULITIS [None]
  - DERMATITIS BULLOUS [None]
  - EAR INFECTION [None]
  - ERYTHEMA [None]
  - INFLAMMATION [None]
  - NASOPHARYNGEAL DISORDER [None]
  - PYREXIA [None]
  - RASH ERYTHEMATOUS [None]
  - RASH MACULO-PAPULAR [None]
  - RASH PUSTULAR [None]
  - RENAL FAILURE [None]
  - SKIN DESQUAMATION [None]
  - STEVENS-JOHNSON SYNDROME [None]
  - VASCULAR PURPURA [None]
